FAERS Safety Report 16661870 (Version 1)
Quarter: 2019Q3

REPORT INFORMATION
  Report Type: Spontaneous
  Country: AT (occurrence: AT)
  Receive Date: 20190802
  Receipt Date: 20190802
  Transmission Date: 20191004
  Serious: Yes (Hospitalization, Other)
  Sender: FDA-Public Use
  Company Number: AT-SA-2019SA180323

PATIENT
  Age: 55 Year
  Sex: Female

DRUGS (16)
  1. PREGABALIN. [Suspect]
     Active Substance: PREGABALIN
     Dosage: 600 UNK
     Dates: start: 20190429, end: 20190512
  2. CLOZAPINE. [Suspect]
     Active Substance: CLOZAPINE
     Indication: SCHIZOPHRENIA
     Dosage: 25-50 MG
     Dates: start: 20190423, end: 20190428
  3. CLOZAPINE. [Suspect]
     Active Substance: CLOZAPINE
     Dosage: 125 UNK
     Dates: start: 20190503, end: 20190505
  4. CLOZAPINE. [Suspect]
     Active Substance: CLOZAPINE
     Dosage: 75 MG, UNK
     Dates: start: 20190508, end: 20190512
  5. TIAPRIDE HYDROCHLORIDE [Suspect]
     Active Substance: TIAPRIDE HYDROCHLORIDE
     Indication: SCHIZOPHRENIA
     Dosage: 200 MG, UNK
     Dates: start: 20190419, end: 20190513
  6. PROPRANOLOL HYDROCHLORIDE. [Suspect]
     Active Substance: PROPRANOLOL HYDROCHLORIDE
     Indication: SCHIZOPHRENIA
     Dosage: 30-40 MG
     Dates: start: 2018, end: 20190512
  7. CLOZAPINE. [Suspect]
     Active Substance: CLOZAPINE
     Dosage: 75-100 MG
     Dates: start: 20190429, end: 20190505
  8. RISPERIDONE. [Suspect]
     Active Substance: RISPERIDONE
     Indication: SCHIZOPHRENIA
     Dosage: 6 MG, UNK
     Route: 048
     Dates: start: 2018, end: 20190423
  9. RISPERIDONE. [Suspect]
     Active Substance: RISPERIDONE
     Dosage: UNK
     Route: 048
     Dates: start: 20190424, end: 20190521
  10. CLOZAPINE. [Suspect]
     Active Substance: CLOZAPINE
     Dosage: 75 MG
     Dates: start: 20190506, end: 20190506
  11. QUETIAPINE FUMARATE. [Suspect]
     Active Substance: QUETIAPINE FUMARATE
     Dosage: 700 MG, UNK
     Route: 048
     Dates: start: 2014, end: 201905
  12. TAMSULOSIN HYDROCHLORIDE. [Suspect]
     Active Substance: TAMSULOSIN HYDROCHLORIDE
     Indication: PRODUCT USED FOR UNKNOWN INDICATION
     Dosage: 0.4 MG, UNK
     Dates: start: 2014
  13. PREGABALIN. [Suspect]
     Active Substance: PREGABALIN
     Indication: PRODUCT USED FOR UNKNOWN INDICATION
     Dosage: 400 MG, UNK
     Dates: start: 2018, end: 20190428
  14. PREGABALIN. [Suspect]
     Active Substance: PREGABALIN
     Dosage: 400 UNK
     Dates: start: 20190513
  15. THYREX [Concomitant]
     Active Substance: LEVOTHYROXINE SODIUM
     Dosage: 0.05 MG, UNK
     Dates: start: 2014
  16. BIPERIDEN [Suspect]
     Active Substance: BIPERIDEN
     Dosage: 8 MG, UNK
     Dates: start: 2014, end: 20190506

REACTIONS (3)
  - Dyskinesia [Recovering/Resolving]
  - Delirium [Recovered/Resolved]
  - Pneumonia [Unknown]

NARRATIVE: CASE EVENT DATE: 20190505
